FAERS Safety Report 24954111 (Version 2)
Quarter: 2025Q1

REPORT INFORMATION
  Report Type: Spontaneous
  Country: NG (occurrence: NG)
  Receive Date: 20250211
  Receipt Date: 20250221
  Transmission Date: 20250408
  Serious: Yes (Other)
  Sender: RANBAXY
  Company Number: NG-SUN PHARMACEUTICAL INDUSTRIES LTD-2025RR-493884

PATIENT
  Age: 3 Year
  Sex: Female

DRUGS (3)
  1. TEMOZOLOMIDE [Suspect]
     Active Substance: TEMOZOLOMIDE
     Indication: Chemotherapy
     Dosage: 200 MILLIGRAM, DAILY
     Route: 065
  2. ONDANSETRON [Concomitant]
     Active Substance: ONDANSETRON
     Indication: Chemotherapy
     Route: 065
  3. DEXAMETHASONE [Concomitant]
     Active Substance: DEXAMETHASONE
     Indication: Chemotherapy
     Route: 065

REACTIONS (4)
  - Otitis externa [Unknown]
  - Anaemia [Unknown]
  - Refusal of treatment by relative [Unknown]
  - Diarrhoea [Unknown]
